FAERS Safety Report 13583132 (Version 1)
Quarter: 2017Q2

REPORT INFORMATION
  Report Type: Spontaneous
  Country: US (occurrence: US)
  Receive Date: 20170525
  Receipt Date: 20170525
  Transmission Date: 20170830
  Serious: No
  Sender: FDA-Public Use
  Company Number: US-ALARA PHARMACEUTICAL CORPORATION-2021248

PATIENT
  Age: 74 Year
  Sex: Female
  Weight: 80.91 kg

DRUGS (4)
  1. LORATADINE. [Concomitant]
     Active Substance: LORATADINE
     Route: 048
  2. LEVO-T [Suspect]
     Active Substance: LEVOTHYROXINE SODIUM
     Indication: HYPOTHYROIDISM
     Route: 048
  3. XOLAIR [Concomitant]
     Active Substance: OMALIZUMAB
  4. VITAMINS [Concomitant]
     Active Substance: VITAMINS

REACTIONS (7)
  - Dyspepsia [Recovering/Resolving]
  - Weight increased [Recovering/Resolving]
  - Abdominal distension [Recovering/Resolving]
  - Cushingoid [Recovering/Resolving]
  - Dry skin [Recovering/Resolving]
  - Memory impairment [Unknown]
  - Alopecia [Recovering/Resolving]
